FAERS Safety Report 12273587 (Version 1)
Quarter: 2016Q2

REPORT INFORMATION
  Report Type: Spontaneous
  Country: CZ (occurrence: CZ)
  Receive Date: 20160415
  Receipt Date: 20160415
  Transmission Date: 20160815
  Serious: Yes (Life-Threatening, Other)
  Sender: FDA-Public Use
  Company Number: CZ-BAXALTA-2016BLT002459

PATIENT
  Age: 39 Year
  Sex: Female
  Weight: 73 kg

DRUGS (11)
  1. AERIUS [Concomitant]
     Active Substance: DESLORATADINE
     Indication: ASTHMA
     Route: 065
  2. PREDNISON LECIVA [Concomitant]
     Indication: ASTHMA
     Route: 065
  3. ECOBEC EASI-BREATH [Concomitant]
     Indication: ASTHMA
     Route: 065
  4. TILADE MINT [Concomitant]
     Indication: ASTHMA
     Route: 065
  5. BERODUAL [Concomitant]
     Active Substance: FENOTEROL HYDROBROMIDE\IPRATROPIUM BROMIDE
     Indication: ASTHMA
     Route: 065
  6. RELVAR ELLIPTA [Concomitant]
     Active Substance: FLUTICASONE FUROATE\VILANTEROL TRIFENATATE
     Indication: ASTHMA
     Route: 065
  7. KIOVIG [Suspect]
     Active Substance: HUMAN IMMUNOGLOBULIN G
     Indication: HUMORAL IMMUNE DEFECT
     Dosage: 100 MG, EVERY 4 WK
     Route: 042
     Dates: start: 20160323, end: 20160323
  8. SPIRIVA [Concomitant]
     Active Substance: TIOTROPIUM BROMIDE MONOHYDRATE
     Indication: ASTHMA
     Route: 065
  9. KALNORMIN [Concomitant]
     Active Substance: POTASSIUM CHLORIDE
     Indication: ASTHMA
     Route: 065
  10. EUPHYLLIN CR N [Concomitant]
     Indication: ASTHMA
     Route: 065
  11. SINGULAIR [Concomitant]
     Active Substance: MONTELUKAST SODIUM
     Indication: ASTHMA
     Route: 065

REACTIONS (6)
  - Peripheral coldness [Recovered/Resolved]
  - Sensation of foreign body [Recovered/Resolved]
  - Application site pruritus [Recovered/Resolved]
  - Feeling hot [Recovered/Resolved]
  - Anaphylactic reaction [Recovered/Resolved]
  - Pruritus generalised [Recovered/Resolved]

NARRATIVE: CASE EVENT DATE: 20160323
